FAERS Safety Report 22789898 (Version 9)
Quarter: 2025Q4

REPORT INFORMATION
  Report Type: Spontaneous
  Country: US (occurrence: US)
  Receive Date: 20230804
  Receipt Date: 20251003
  Transmission Date: 20260117
  Serious: Yes (Other)
  Sender: PFIZER
  Company Number: US-PFIZER INC-PV202300014043

PATIENT
  Age: 65 Year
  Sex: Female
  Weight: 85.261 kg

DRUGS (3)
  1. BRAFTOVI [Suspect]
     Active Substance: ENCORAFENIB
     Indication: Malignant melanoma
     Dosage: 225 MG, 1X/DAY (TAKE 3 CAPSULES ONCE DAILY)
     Route: 048
     Dates: start: 202212
  2. MEKTOVI [Suspect]
     Active Substance: BINIMETINIB
     Indication: Malignant melanoma
     Dosage: 45 MG, 2X/DAY (TAKE 3 TABLETS TWICE DAILY, APPROX 12 HOURS APART. TAKE WITH OR WITHOUT FOOD)
     Route: 048
     Dates: start: 202212
  3. LEXAPRO [Concomitant]
     Active Substance: ESCITALOPRAM OXALATE
     Dosage: UNK

REACTIONS (4)
  - Toe amputation [Unknown]
  - Depression [Recovering/Resolving]
  - Peripheral swelling [Recovering/Resolving]
  - Liver function test increased [Unknown]

NARRATIVE: CASE EVENT DATE: 20230201
